FAERS Safety Report 5084144-X (Version None)
Quarter: 2006Q3

REPORT INFORMATION
  Report Type: 
  Country: None (occurrence: None)
  Receive Date: 20060816
  Receipt Date: 20060731
  Transmission Date: 20061208
  Serious: Yes (Other)
  Sender: FDA-Public Use
  Company Number: 8017753

PATIENT
  Age: 23 Year
  Sex: Female
  Weight: 61.7 kg

DRUGS (7)
  1. KEPPRA [Suspect]
     Dosage: 500 MG/ D PO
     Route: 048
     Dates: start: 20060419, end: 20060419
  2. KEPPRA [Suspect]
     Dosage: 500 MG /D PO
     Route: 048
     Dates: start: 20060426, end: 20060426
  3. KEPPRA [Suspect]
     Dosage: 500 MG /D PO
     Route: 048
     Dates: start: 20060510, end: 20060510
  4. PLACEBO [Suspect]
     Dosage: /D PO
     Route: 048
     Dates: start: 20060419, end: 20060419
  5. PLACEBO [Suspect]
     Dosage: /D PO
     Route: 048
     Dates: start: 20060426, end: 20060426
  6. PLACEBO [Suspect]
     Dosage: /D PO
     Route: 048
     Dates: start: 20060510, end: 20060510
  7. MOXIFLOXACIN HCL [Suspect]
     Dosage: 400 MG /D PO
     Route: 048
     Dates: start: 20060503, end: 20060503

REACTIONS (6)
  - ABORTION SPONTANEOUS [None]
  - BLOOD URINE [None]
  - DRUG EXPOSURE DURING PREGNANCY [None]
  - ECTOPIC PREGNANCY [None]
  - HAEMORRHAGE [None]
  - UNINTENDED PREGNANCY [None]
